FAERS Safety Report 9228784 (Version 2)
Quarter: 2013Q2

REPORT INFORMATION
  Report Type: Report from Study
  Country: ES (occurrence: ES)
  Receive Date: 20130412
  Receipt Date: 20130425
  Transmission Date: 20140414
  Serious: Yes (Hospitalization)
  Sender: FDA-Public Use
  Company Number: ES-ROCHE-1203680

PATIENT
  Age: 40 Year
  Sex: Female

DRUGS (6)
  1. PERTUZUMAB [Suspect]
     Indication: BREAST CANCER
     Dosage: LAST DOSE PRIOR TO SAE ON 04 MAR 2013
     Route: 042
     Dates: start: 20130304
  2. TRASTUZUMAB [Suspect]
     Indication: BREAST CANCER
     Dosage: LAST DOSE PRIOR TO SAE ON 04 MAR 2013
     Route: 042
     Dates: start: 20130304
  3. DOCETAXEL [Suspect]
     Indication: BREAST CANCER
     Dosage: LAST DOSE PRIOR TO SAE ON 04 MAR 2013
     Route: 042
     Dates: start: 20130304
  4. GELCLAIR [Concomitant]
     Route: 065
     Dates: start: 20130309
  5. MICOSTATIN [Concomitant]
     Route: 065
     Dates: start: 20130309
  6. FLUCONAZOLE [Concomitant]
     Route: 065
     Dates: start: 20130309

REACTIONS (1)
  - Mucosal inflammation [Recovered/Resolved]
